FAERS Safety Report 23636437 (Version 1)
Quarter: 2024Q1

REPORT INFORMATION
  Report Type: Spontaneous
  Country: HR (occurrence: HR)
  Receive Date: 20240315
  Receipt Date: 20240315
  Transmission Date: 20240410
  Serious: Yes (Other)
  Sender: FDA-Public Use
  Company Number: None

PATIENT
  Age: 20 Year
  Sex: Male

DRUGS (5)
  1. IBUPROFEN [Suspect]
     Active Substance: IBUPROFEN
     Indication: Product used for unknown indication
     Dosage: 30 GRAM, QD (IBUPROFEN 30 G)
     Route: 048
     Dates: start: 20231227, end: 20231227
  2. CONTROLOC [Suspect]
     Active Substance: PANTOPRAZOLE SODIUM
     Indication: Product used for unknown indication
     Dosage: 1440 MILLIGRAM, QD (PANTOPRAZOL 1440 MG)
     Route: 048
     Dates: start: 20231227, end: 20231227
  3. BISOPROLOL FUMARATE [Suspect]
     Active Substance: BISOPROLOL FUMARATE
     Indication: Product used for unknown indication
     Dosage: 75 MILLIGRAM, QD (BISOPROLOL 75 MG)
     Route: 048
     Dates: start: 20231227, end: 20231227
  4. NORMABEL [Suspect]
     Active Substance: DIAZEPAM
     Indication: Product used for unknown indication
     Dosage: 80 MILLIGRAM, QD (DIAZEPAM 80 MG)
     Route: 048
     Dates: start: 20231227, end: 20231227
  5. DICLOFENAC SODIUM [Suspect]
     Active Substance: DICLOFENAC\DICLOFENAC SODIUM
     Indication: Product used for unknown indication
     Dosage: 750 MILLIGRAM, QD (DICLOFENAC 750 MG)
     Route: 048
     Dates: start: 20231227, end: 20231227

REACTIONS (3)
  - Suicide attempt [Unknown]
  - Loss of consciousness [Unknown]
  - Intentional overdose [Unknown]

NARRATIVE: CASE EVENT DATE: 20231227
